FAERS Safety Report 9742261 (Version 2)
Quarter: 2013Q4

REPORT INFORMATION
  Report Type: Spontaneous
  Country: JP (occurrence: JP)
  Receive Date: 20131210
  Receipt Date: 20131223
  Transmission Date: 20140711
  Serious: Yes (Other)
  Sender: FDA-Public Use
  Company Number: JP-SA-2013SA124809

PATIENT
  Age: 24 Year
  Sex: Male

DRUGS (1)
  1. ALLEGRA [Suspect]
     Indication: RHINITIS ALLERGIC
     Route: 048
     Dates: start: 20131119

REACTIONS (3)
  - Convulsion [Unknown]
  - Nausea [Unknown]
  - Dizziness [Unknown]
